FAERS Safety Report 12298937 (Version 4)
Quarter: 2021Q3

REPORT INFORMATION
  Report Type: Report from Study
  Country: IN (occurrence: IN)
  Receive Date: 20160425
  Receipt Date: 20210818
  Transmission Date: 20211014
  Serious: Yes (Hospitalization, Other)
  Sender: FDA-Public Use
  Company Number: IN-ROCHE-1738279

PATIENT
  Age: 45 Year
  Sex: Male
  Weight: 77.8 kg

DRUGS (53)
  1. RITUXIMAB. [Suspect]
     Active Substance: RITUXIMAB
     Dosage: VISIT 2
     Route: 042
     Dates: start: 20160317, end: 20160317
  2. METHYLPREDNISOLONE. [Suspect]
     Active Substance: METHYLPREDNISOLONE
     Indication: VASCULITIS
     Route: 042
     Dates: start: 20160310
  3. WYSOLONE [Concomitant]
     Active Substance: PREDNISOLONE
     Route: 048
     Dates: start: 20130422
  4. NICARDIA [Concomitant]
     Active Substance: NIFEDIPINE
     Dosage: 1?0?1
     Dates: start: 20160328
  5. NICARDIA [Concomitant]
     Active Substance: NIFEDIPINE
     Route: 048
     Dates: start: 20151006
  6. AZORAN (INDIA) [Concomitant]
     Indication: VASCULITIS
     Route: 048
     Dates: start: 20160303, end: 20160317
  7. FEBURIC [Concomitant]
     Active Substance: FEBUXOSTAT
     Route: 048
     Dates: start: 20160303, end: 20160317
  8. FEFOL Z [Concomitant]
     Route: 048
     Dates: start: 20160419
  9. WYSOLONE [Concomitant]
     Active Substance: PREDNISOLONE
     Indication: VASCULITIS
     Route: 048
     Dates: start: 20160303, end: 20160317
  10. AZORAN (INDIA) [Concomitant]
     Route: 048
     Dates: start: 20151006
  11. FOLVITE [Concomitant]
     Active Substance: FOLIC ACID
     Indication: FOLATE DEFICIENCY
     Route: 048
     Dates: start: 20160419
  12. LOSARTAN. [Concomitant]
     Active Substance: LOSARTAN
     Indication: HYPERTENSION
     Route: 048
     Dates: start: 20130422
  13. PREDNISOLONE. [Concomitant]
     Active Substance: PREDNISOLONE
     Indication: VASCULITIS
     Route: 048
     Dates: start: 20160303
  14. PREDNISOLONE. [Concomitant]
     Active Substance: PREDNISOLONE
     Route: 048
     Dates: start: 20160303, end: 20160317
  15. PREDNISOLONE. [Concomitant]
     Active Substance: PREDNISOLONE
     Route: 048
     Dates: start: 20160504, end: 20160609
  16. AMOXICILLIN TRIHYDRATE;CLAVULANATE POTASSIUM [Concomitant]
     Active Substance: AMOXICILLIN\CLAVULANATE POTASSIUM
     Route: 042
     Dates: start: 20160327, end: 20160327
  17. WYSOLONE [Concomitant]
     Active Substance: PREDNISOLONE
     Route: 048
     Dates: start: 20160328, end: 20160430
  18. FEBURIC [Concomitant]
     Active Substance: FEBUXOSTAT
     Dosage: ALTERNATE DAYS
     Route: 048
     Dates: start: 20160317
  19. ELTROXIN [Concomitant]
     Active Substance: LEVOTHYROXINE
     Route: 048
     Dates: start: 20151006
  20. SEVCAR [Concomitant]
     Indication: HYPERPHOSPHATAEMIA
     Route: 048
     Dates: start: 20160303
  21. RESTYL [Concomitant]
     Route: 048
     Dates: start: 20160419
  22. PREDNISOLONE. [Concomitant]
     Active Substance: PREDNISOLONE
     Route: 048
     Dates: start: 20160402, end: 20160416
  23. AZEE [Concomitant]
     Route: 048
     Dates: start: 20160504, end: 20160506
  24. MINIPRESS [Concomitant]
     Active Substance: PRAZOSIN HYDROCHLORIDE
     Dosage: 0?1?0
     Route: 048
     Dates: start: 20160419, end: 20160504
  25. LASIX [Concomitant]
     Active Substance: FUROSEMIDE
     Dosage: 1?0?1/2
     Route: 048
     Dates: start: 20160317, end: 20160328
  26. AUGMENTIN DUO [Concomitant]
     Active Substance: AMOXICILLIN\CLAVULANATE POTASSIUM
     Route: 048
     Dates: start: 20160328, end: 20160401
  27. PANTOPRAZOLE [Concomitant]
     Active Substance: PANTOPRAZOLE
     Indication: DYSPEPSIA
     Route: 048
     Dates: start: 20130422
  28. RITUXIMAB. [Suspect]
     Active Substance: RITUXIMAB
     Dosage: VISIT 4
     Route: 042
     Dates: start: 20160402, end: 20160402
  29. WYSOLONE [Concomitant]
     Active Substance: PREDNISOLONE
     Dates: start: 20160511
  30. PAN?D [Concomitant]
     Active Substance: DOMPERIDONE\PANTOPRAZOLE SODIUM
     Indication: DYSPEPSIA
     Route: 048
     Dates: start: 20160303
  31. MINIPRESS [Concomitant]
     Active Substance: PRAZOSIN HYDROCHLORIDE
     Indication: HYPERTENSION
     Route: 048
     Dates: start: 20160303, end: 20160328
  32. AUGMENTIN DUO [Concomitant]
     Active Substance: AMOXICILLIN\CLAVULANATE POTASSIUM
     Route: 048
     Dates: start: 20160419, end: 20160423
  33. PREDNISOLONE. [Concomitant]
     Active Substance: PREDNISOLONE
     Route: 048
     Dates: start: 20160609
  34. PIPERACILLIN AND TAZOBACTAM [Concomitant]
     Active Substance: PIPERACILLIN SODIUM\TAZOBACTAM SODIUM
     Route: 042
     Dates: start: 20160509, end: 20160514
  35. METHYLPREDNISOLONE. [Suspect]
     Active Substance: METHYLPREDNISOLONE
     Indication: GRANULOMATOSIS WITH POLYANGIITIS
     Route: 042
     Dates: start: 20160302, end: 20160302
  36. METOPROLOL. [Concomitant]
     Active Substance: METOPROLOL
     Dates: start: 20160303
  37. SHELCAL [Concomitant]
     Active Substance: CALCIUM CARBONATE\CHOLECALCIFEROL
     Route: 048
     Dates: start: 20160328
  38. AMOXICILLIN TRIHYDRATE;CLAVULANATE POTASSIUM [Concomitant]
     Active Substance: AMOXICILLIN\CLAVULANATE POTASSIUM
     Route: 042
     Dates: start: 20160415, end: 20160416
  39. SHELCAL [Concomitant]
     Active Substance: CALCIUM CARBONATE\CHOLECALCIFEROL
     Indication: HYPOCALCAEMIA
     Route: 048
     Dates: start: 20160303, end: 20160328
  40. FEBURIC [Concomitant]
     Active Substance: FEBUXOSTAT
     Dates: start: 20160511
  41. EMESET [Concomitant]
     Active Substance: ONDANSETRON HYDROCHLORIDE
     Indication: NAUSEA
     Dosage: SOS
     Route: 048
     Dates: start: 20160303, end: 20160303
  42. FOLVITE [Concomitant]
     Active Substance: FOLIC ACID
     Route: 048
     Dates: start: 20130422
  43. FURSEMIDE [Concomitant]
     Active Substance: FUROSEMIDE
     Dates: start: 20160328
  44. PIPERACILLIN AND TAZOBACTAM [Concomitant]
     Active Substance: PIPERACILLIN SODIUM\TAZOBACTAM SODIUM
     Route: 042
     Dates: start: 20160504, end: 20160511
  45. CIPROFLOXACIN. [Concomitant]
     Active Substance: CIPROFLOXACIN
     Dates: start: 20160511, end: 20160526
  46. RITUXIMAB. [Suspect]
     Active Substance: RITUXIMAB
     Indication: GRANULOMATOSIS WITH POLYANGIITIS
     Dosage: DATE OF LAST DOSE PRIOR TO SAE: 02/APR/2016
     Route: 042
     Dates: start: 20160310, end: 20160310
  47. RITUXIMAB. [Suspect]
     Active Substance: RITUXIMAB
     Dosage: VISIT 3
     Route: 042
     Dates: start: 20160325, end: 20160325
  48. WYSOLONE [Concomitant]
     Active Substance: PREDNISOLONE
     Route: 048
     Dates: start: 20160317, end: 20160328
  49. NICARDIA [Concomitant]
     Active Substance: NIFEDIPINE
     Indication: HYPERTENSION
     Route: 048
     Dates: start: 20160303, end: 20160328
  50. MINIPRESS [Concomitant]
     Active Substance: PRAZOSIN HYDROCHLORIDE
     Dates: start: 20160511, end: 20160629
  51. ELTROXIN [Concomitant]
     Active Substance: LEVOTHYROXINE
     Indication: HYPOTHYROIDISM
     Route: 048
     Dates: start: 20160303
  52. LASIX [Concomitant]
     Active Substance: FUROSEMIDE
     Dosage: 1/2?1/2
     Route: 048
     Dates: start: 20160303, end: 20160317
  53. PREDNISOLONE. [Concomitant]
     Active Substance: PREDNISOLONE
     Route: 048
     Dates: start: 20160317, end: 20160402

REACTIONS (9)
  - Acute kidney injury [Recovering/Resolving]
  - Granulomatosis with polyangiitis [Recovered/Resolved]
  - Pulmonary oedema [Recovered/Resolved]
  - Peritoneal dialysis [Recovered/Resolved]
  - Blood creatinine increased [Recovered/Resolved]
  - Respiratory failure [Recovered/Resolved]
  - Pneumonia [Recovered/Resolved]
  - Pulmonary oedema [Recovered/Resolved]
  - Chronic kidney disease [Recovered/Resolved]

NARRATIVE: CASE EVENT DATE: 20160325
